FAERS Safety Report 9404364 (Version 2)
Quarter: 2013Q3

REPORT INFORMATION
  Report Type: Spontaneous
  Country: US (occurrence: None)
  Receive Date: 20130715
  Receipt Date: 20130722
  Transmission Date: 20140515
  Serious: Yes (Life-Threatening, Hospitalization, Disabling)
  Sender: FDA-Public Use
  Company Number: SP06772

PATIENT
  Age: 70 Year
  Sex: Male
  Weight: 111.13 kg

DRUGS (12)
  1. RELISTOR [Suspect]
     Indication: ILEUS
     Route: 058
     Dates: start: 20130523, end: 20130523
  2. OXYCODONE [Concomitant]
  3. ACAETAMINOPHEN [Concomitant]
  4. ONDANSETRON [Concomitant]
  5. LEVOTHYROXINE [Concomitant]
  6. DOCUSATE [Concomitant]
  7. METOPROLOL [Concomitant]
  8. GEMFIBROZIL [Concomitant]
  9. BOSACODYL [Concomitant]
  10. DIVALPROEX [Concomitant]
  11. DICYCLOMINE [Concomitant]
  12. DEXAMETHASONE [Concomitant]

REACTIONS (9)
  - Abdominal pain [None]
  - Abdominal distension [None]
  - Colon gangrene [None]
  - Large intestine perforation [None]
  - Cholecystitis [None]
  - Atrial fibrillation [None]
  - Intestinal dilatation [None]
  - Intestinal stenosis [None]
  - Colitis ischaemic [None]
